FAERS Safety Report 9828173 (Version 2)
Quarter: 2015Q3

REPORT INFORMATION
  Report Type: Spontaneous
  Country: UG (occurrence: US)
  Receive Date: 20140117
  Receipt Date: 20150722
  Transmission Date: 20151125
  Serious: No
  Sender: FDA-Public Use
  Company Number: UG-GILEAD-2011-0036653

PATIENT
  Sex: Male

DRUGS (1)
  1. ATRIPLA [Suspect]
     Active Substance: EFAVIRENZ\EMTRICITABINE\TENOFOVIR DISOPROXIL FUMARATE
     Indication: HIV INFECTION
     Dates: start: 200909

REACTIONS (3)
  - Nausea [Unknown]
  - Disturbance in attention [Unknown]
  - Abnormal dreams [Unknown]
